FAERS Safety Report 9232459 (Version 2)
Quarter: 2013Q2

REPORT INFORMATION
  Report Type: Spontaneous
  Country: US (occurrence: US)
  Receive Date: 20130416
  Receipt Date: 20130510
  Transmission Date: 20140414
  Serious: No
  Sender: FDA-Public Use
  Company Number: US-BIOGENIDEC-2013BI032027

PATIENT
  Sex: Female

DRUGS (2)
  1. AVONEX [Suspect]
     Indication: MULTIPLE SCLEROSIS
     Route: 030
     Dates: start: 19960610
  2. AVONEX [Suspect]
     Indication: MULTIPLE SCLEROSIS
     Route: 030
     Dates: start: 19970715, end: 19980715

REACTIONS (7)
  - Musculoskeletal disorder [Not Recovered/Not Resolved]
  - Gastric disorder [Unknown]
  - Nausea [Unknown]
  - Headache [Unknown]
  - Anxiety [Not Recovered/Not Resolved]
  - Malaise [Unknown]
  - Arthritis [Not Recovered/Not Resolved]
